FAERS Safety Report 15456131 (Version 1)
Quarter: 2018Q4

REPORT INFORMATION
  Report Type: Report from Study
  Country: US (occurrence: US)
  Receive Date: 20181002
  Receipt Date: 20181002
  Transmission Date: 20190204
  Serious: Yes (Other)
  Sender: FDA-Public Use
  Company Number: US-SA-2018SA262102

PATIENT
  Age: 63 Year
  Sex: Male

DRUGS (1)
  1. INSULIN GLARGINE [Suspect]
     Active Substance: INSULIN GLARGINE
     Indication: TYPE 2 DIABETES MELLITUS
     Dosage: 40 U, UNK
     Dates: start: 20180101

REACTIONS (7)
  - Urinary bladder haemorrhage [Recovering/Resolving]
  - Anxiety [Recovering/Resolving]
  - Atrioventricular block [Recovering/Resolving]
  - Myocardial infarction [Recovering/Resolving]
  - Weight decreased [Recovering/Resolving]
  - Prostate cancer [Recovering/Resolving]
  - Limb discomfort [Recovering/Resolving]

NARRATIVE: CASE EVENT DATE: 20180101
